FAERS Safety Report 19121514 (Version 1)
Quarter: 2021Q2

REPORT INFORMATION
  Report Type: Spontaneous
  Country: US (occurrence: US)
  Receive Date: 20210412
  Receipt Date: 20210412
  Transmission Date: 20210717
  Serious: Yes (Other)
  Sender: FDA-Public Use
  Company Number: US-GLAXOSMITHKLINE-US2021GSK080317

PATIENT
  Sex: Male

DRUGS (2)
  1. ZANTAC [Suspect]
     Active Substance: RANITIDINE HYDROCHLORIDE
     Indication: ULCER HAEMORRHAGE
     Dosage: 300 MG, QD, SOMETIMES MORE THAN ONCE A DAY
     Route: 065
     Dates: start: 198401, end: 202001
  2. ZANTAC [Suspect]
     Active Substance: RANITIDINE HYDROCHLORIDE
     Indication: ULCER HAEMORRHAGE
     Dosage: 300 MG, QD, SOMETIMES MORE THAN ONCE A DAY
     Route: 065
     Dates: start: 198401, end: 202001

REACTIONS (1)
  - Renal cancer [Unknown]
